FAERS Safety Report 11566108 (Version 2)
Quarter: 2015Q4

REPORT INFORMATION
  Report Type: Report from Study
  Country: DE (occurrence: DE)
  Receive Date: 20150929
  Receipt Date: 20151008
  Transmission Date: 20160304
  Serious: Yes (Hospitalization)
  Sender: FDA-Public Use
  Company Number: DE-AMGEN-DEUCT2015096710

PATIENT
  Age: 64 Year
  Sex: Male

DRUGS (18)
  1. AMG 145 [Suspect]
     Active Substance: EVOLOCUMAB
     Indication: HYPERLIPIDAEMIA
     Dosage: 140 MG/ML, Q2WK
     Route: 058
     Dates: start: 20130507
  2. PREFILLED AUTOINJECTOR/PEN [Suspect]
     Active Substance: DEVICE
     Indication: DYSLIPIDAEMIA
  3. PARACETAMOL [Concomitant]
     Active Substance: ACETAMINOPHEN
     Indication: PAIN PROPHYLAXIS
     Dosage: 500 MG, AS NECESSARY
     Route: 048
     Dates: start: 2013
  4. IBUPROFEN. [Concomitant]
     Active Substance: IBUPROFEN
     Indication: INFLAMMATION
     Dosage: 200 MG, BID
     Route: 048
     Dates: start: 20150129, end: 20150204
  5. ATORVASTATIN [Concomitant]
     Active Substance: ATORVASTATIN
     Indication: HYPERLIPIDAEMIA
     Dosage: 20 - 40 MG, QHS
     Dates: start: 20130820
  6. IBUPROFEN. [Concomitant]
     Active Substance: IBUPROFEN
     Indication: PAIN
  7. AMG 145 [Suspect]
     Active Substance: EVOLOCUMAB
     Indication: DYSLIPIDAEMIA
  8. PREFILLED AUTOINJECTOR/PEN [Suspect]
     Active Substance: DEVICE
     Indication: HYPERLIPIDAEMIA
     Dosage: UNK
     Route: 058
     Dates: start: 20130507
  9. ESOMEPRAZOL TAD [Concomitant]
     Indication: PROPHYLAXIS AGAINST GASTROINTESTINAL ULCER
     Dosage: 20 - 40 MG, QD
     Route: 048
     Dates: start: 201310
  10. DICLOFENAC SODIUM. [Concomitant]
     Active Substance: DICLOFENAC SODIUM
     Indication: INFLAMMATION
     Dosage: 75 MG, QD
     Route: 048
     Dates: start: 20150205
  11. DICLOFENAC SODIUM. [Concomitant]
     Active Substance: DICLOFENAC SODIUM
     Indication: PAIN
  12. ATORVASTATIN [Concomitant]
     Active Substance: ATORVASTATIN
     Indication: DYSLIPIDAEMIA
  13. EZETIMIBE. [Concomitant]
     Active Substance: EZETIMIBE
     Indication: HYPERLIPIDAEMIA
     Dosage: 10 MG, QHS
     Dates: start: 20021108
  14. EZETIMIBE. [Concomitant]
     Active Substance: EZETIMIBE
     Indication: DYSLIPIDAEMIA
  15. COLESEVELAM [Concomitant]
     Active Substance: COLESEVELAM
     Indication: HYPERLIPIDAEMIA
     Dosage: 625 MG, BID
     Dates: start: 20130312
  16. RANTUDIL [Concomitant]
     Active Substance: ACEMETACIN
     Indication: INFLAMMATION
     Dosage: 90 MG, QD
     Route: 048
     Dates: start: 201310, end: 20140124
  17. RANTUDIL [Concomitant]
     Active Substance: ACEMETACIN
     Indication: PAIN
  18. COLESEVELAM [Concomitant]
     Active Substance: COLESEVELAM
     Indication: DYSLIPIDAEMIA

REACTIONS (2)
  - Osteonecrosis [Recovered/Resolved]
  - Osteoarthritis [Recovering/Resolving]

NARRATIVE: CASE EVENT DATE: 20150226
